FAERS Safety Report 11442840 (Version 4)
Quarter: 2015Q4

REPORT INFORMATION
  Report Type: Spontaneous
  Country: CA (occurrence: CA)
  Receive Date: 20150901
  Receipt Date: 20151022
  Transmission Date: 20160304
  Serious: Yes (Other)
  Sender: FDA-Public Use
  Company Number: CA-BAYER-2015-404705

PATIENT
  Sex: Female

DRUGS (6)
  1. WARFARIN [Suspect]
     Active Substance: WARFARIN
     Dosage: UNK
     Dates: start: 2013
  2. WARFARIN [Suspect]
     Active Substance: WARFARIN
     Dosage: UNK
  3. ASPIRIN 81MG [Suspect]
     Active Substance: ASPIRIN
     Dosage: UNK
     Dates: start: 20131123, end: 2015
  4. ASPIRIN 81MG [Suspect]
     Active Substance: ASPIRIN
     Dosage: UNK UNK, QD
     Dates: start: 2013
  5. WARFARIN [Suspect]
     Active Substance: WARFARIN
     Dosage: UNK
     Dates: start: 2014
  6. CLOPIDOGREL [Suspect]
     Active Substance: CLOPIDOGREL BISULFATE
     Indication: ANTICOAGULANT THERAPY
     Dosage: 75 MG, QD
     Dates: start: 2013

REACTIONS (6)
  - Labelled drug-drug interaction medication error [None]
  - Haemorrhage urinary tract [None]
  - Blood urine present [None]
  - Urinary incontinence [None]
  - Nephrolithiasis [None]
  - Fatigue [None]

NARRATIVE: CASE EVENT DATE: 2015
